FAERS Safety Report 16545260 (Version 2)
Quarter: 2019Q3

REPORT INFORMATION
  Report Type: Spontaneous
  Country: HU (occurrence: HU)
  Receive Date: 20190709
  Receipt Date: 20190725
  Transmission Date: 20191004
  Serious: Yes (Hospitalization)
  Sender: FDA-Public Use
  Company Number: HU-PFIZER INC-2019286412

PATIENT
  Age: 24 Year
  Sex: Female

DRUGS (3)
  1. CIPROFLOXACIN HCL [Suspect]
     Active Substance: CIPROFLOXACIN HYDROCHLORIDE
     Dosage: UNK
     Route: 065
  2. ACETAMINOPHEN. [Suspect]
     Active Substance: ACETAMINOPHEN
     Dosage: UNK
     Route: 065
  3. METAMIZOL [Suspect]
     Active Substance: METAMIZOLE SODIUM
     Dosage: UNK
     Route: 065

REACTIONS (3)
  - Hepatic encephalopathy [Recovered/Resolved]
  - Toxicity to various agents [Recovered/Resolved]
  - Acute hepatic failure [Recovered/Resolved]
